FAERS Safety Report 4504695-3 (Version None)
Quarter: 2004Q4

REPORT INFORMATION
  Report Type: 
  Country: None (occurrence: None)
  Receive Date: 20041118
  Receipt Date: 20041110
  Transmission Date: 20050328
  Serious: Yes (Hospitalization)
  Sender: FDA-Public Use
  Company Number: JP-MERCK-0411USA02459

PATIENT
  Age: 79 Year
  Sex: Male
  Weight: 74 kg

DRUGS (7)
  1. ALDOMET [Suspect]
     Indication: HYPERTENSION
     Route: 048
     Dates: start: 20021007, end: 20021014
  2. PRINIVIL [Suspect]
     Indication: HYPERTENSION
     Route: 048
     Dates: start: 20021007, end: 20021014
  3. CONIEL [Concomitant]
     Route: 048
     Dates: start: 20020918, end: 20021006
  4. COZAAR [Concomitant]
     Route: 048
     Dates: start: 20020918, end: 20021006
  5. COZAAR [Concomitant]
     Route: 048
     Dates: start: 20021012, end: 20021014
  6. EVIPROSTAT [Concomitant]
     Route: 048
     Dates: start: 20020918, end: 20021014
  7. BEZATOL [Concomitant]
     Route: 048
     Dates: start: 20020918, end: 20021014

REACTIONS (5)
  - CHILLS [None]
  - DECREASED APPETITE [None]
  - HEADACHE [None]
  - HEPATIC FUNCTION ABNORMAL [None]
  - PYREXIA [None]
